FAERS Safety Report 9640451 (Version 1)
Quarter: 2013Q4

REPORT INFORMATION
  Report Type: Spontaneous
  Country: US (occurrence: None)
  Receive Date: 20131021
  Receipt Date: 20131021
  Transmission Date: 20140711
  Serious: Yes (Other)
  Sender: FDA-Public Use
  Company Number: 2013US00700

PATIENT
  Age: 21 Year
  Sex: Male

DRUGS (3)
  1. CITALOPRAM [Suspect]
  2. OLANZAPINE [Suspect]
  3. CLONAZEPAM [Concomitant]

REACTIONS (17)
  - Overdose [None]
  - Cardiotoxicity [None]
  - Convulsion [None]
  - Unresponsive to stimuli [None]
  - Body temperature decreased [None]
  - Posturing [None]
  - Miosis [None]
  - Rales [None]
  - Electrocardiogram QT prolonged [None]
  - Electrocardiogram QRS complex prolonged [None]
  - Leukocytosis [None]
  - Blood lactic acid increased [None]
  - Hypotension [None]
  - Bradycardia [None]
  - No therapeutic response [None]
  - Neurotoxicity [None]
  - Pneumonia aspiration [None]
